FAERS Safety Report 12541331 (Version 1)
Quarter: 2016Q3

REPORT INFORMATION
  Report Type: Spontaneous
  Country: US (occurrence: US)
  Receive Date: 20160708
  Receipt Date: 20160708
  Transmission Date: 20161109
  Serious: No
  Sender: FDA-Public Use
  Company Number: US-CONCORDIA PHARMACEUTICALS INC.-CO-OR-US-2016-005

PATIENT
  Age: 8 Month
  Sex: Male

DRUGS (4)
  1. PREDNISOLONE. [Suspect]
     Active Substance: PREDNISOLONE
  2. PREDNISOLONE. [Suspect]
     Active Substance: PREDNISOLONE
     Indication: INFANTILE SPASMS
     Dosage: 40?60 MG/DAY IN THREE TO FOUR DIVIDED DOSES
  3. PREDNISOLONE. [Suspect]
     Active Substance: PREDNISOLONE
  4. PREDNISOLONE. [Suspect]
     Active Substance: PREDNISOLONE
     Dosage: 10 MG THREE TIMES DAILY (OR 10 MG FOUR TIMES DAILY FOR THOSE THAT REQUIRED A DOSE INCREASE TO 60 MG/

REACTIONS (1)
  - Glucocorticoid deficiency [Recovered/Resolved]
